FAERS Safety Report 14660297 (Version 1)
Quarter: 2018Q1

REPORT INFORMATION
  Report Type: Spontaneous
  Country: PH (occurrence: PH)
  Receive Date: 20180320
  Receipt Date: 20180320
  Transmission Date: 20180509
  Serious: Yes (Death, Other)
  Sender: FDA-Public Use
  Company Number: PH-PFIZER INC-2018115163

PATIENT
  Age: 73 Year
  Sex: Female

DRUGS (6)
  1. SITAGLIPTIN [Suspect]
     Active Substance: SITAGLIPTIN
     Dosage: UNK
  2. ASPILETS [Suspect]
     Active Substance: ASPIRIN
     Indication: HYPERTENSION
     Dosage: UNK
     Dates: end: 20170930
  3. IBERET /00915201/ [Suspect]
     Active Substance: IRON\VITAMINS
     Dosage: UNK
  4. PREGABALIN. [Suspect]
     Active Substance: PREGABALIN
     Dosage: UNK
  5. PLETAAL [Suspect]
     Active Substance: CILOSTAZOL
     Dosage: UNK, 2X/DAY
     Dates: end: 20170930
  6. CATAPRES [Suspect]
     Active Substance: CLONIDINE HYDROCHLORIDE
     Dosage: UNK

REACTIONS (1)
  - Cardiac arrest [Fatal]
